FAERS Safety Report 5064659-0 (Version None)
Quarter: 2006Q3

REPORT INFORMATION
  Report Type: 
  Country: None (occurrence: None)
  Receive Date: 20060728
  Receipt Date: 20040719
  Transmission Date: 20061208
  Serious: Yes (Hospitalization)
  Sender: FDA-Public Use
  Company Number: US-GLAXOSMITHKLINE-A0519689A

PATIENT
  Sex: Female

DRUGS (3)
  1. PAXIL CR [Suspect]
     Indication: ANXIETY
     Route: 048
     Dates: start: 20000401
  2. PAXIL [Suspect]
     Indication: ANXIETY
     Dosage: 20MG PER DAY
     Route: 048
  3. VICODIN [Suspect]
     Dosage: 10TAB SINGLE DOSE
     Route: 048
     Dates: start: 20041023, end: 20041023

REACTIONS (5)
  - DRUG WITHDRAWAL SYNDROME [None]
  - INTENTIONAL SELF-INJURY [None]
  - OVERDOSE [None]
  - PARAESTHESIA [None]
  - SUICIDAL IDEATION [None]
